FAERS Safety Report 7027017-5 (Version None)
Quarter: 2010Q4

REPORT INFORMATION
  Report Type: 
  Country: None (occurrence: None)
  Receive Date: 20101004
  Receipt Date: 20100930
  Transmission Date: 20110411
  Serious: Yes (Death)
  Sender: FDA-Public Use
  Company Number: CA-ABBOTT-10P-028-0674334-00

PATIENT
  Age: 5 Year
  Sex: Female
  Weight: 35 kg

DRUGS (3)
  1. CLARITHROMYCIN [Suspect]
     Indication: EAR INFECTION
  2. VALPROIC ACID [Interacting]
     Indication: CONVULSION
  3. HYDROCODONE BITARTRATE [Interacting]
     Indication: NASOPHARYNGITIS
     Dosage: 30 MG OVER 24 HOURS
     Route: 048

REACTIONS (2)
  - DRUG INTERACTION [None]
  - OVERDOSE [None]
